FAERS Safety Report 6826901-2 (Version None)
Quarter: 2010Q3

REPORT INFORMATION
  Report Type: 
  Country: None (occurrence: None)
  Receive Date: 20100709
  Receipt Date: 20100625
  Transmission Date: 20110219
  Serious: Yes (Other)
  Sender: FDA-Public Use
  Company Number: ES-ELI_LILLY_AND_COMPANY-ES201007001458

PATIENT
  Sex: Female
  Weight: 74 kg

DRUGS (7)
  1. FORTEO [Suspect]
     Indication: OSTEOPOROSIS
     Dosage: 20 UG, DAILY (1/D)
     Route: 058
     Dates: start: 20100224
  2. HIDROSALURETIL [Concomitant]
     Dosage: HALF 50 MG, DAILY (1/D)
     Route: 048
  3. LOPID [Concomitant]
     Dosage: 600 MG, DAILY (1/D)
     Route: 048
  4. PLAVIX [Concomitant]
     Dosage: 75 MG, DAILY (1/D)
     Route: 048
  5. HEMOVAS [Concomitant]
     Dosage: UNK, EVERY 12 HOURS
     Route: 048
  6. INALADUO [Concomitant]
     Dosage: 1 PUFF, EVERY 12 HOURS
     Route: 055
  7. SPIRIVA [Concomitant]
     Dosage: 1 PUFF, EVERY 12 HOURS
     Route: 055

REACTIONS (2)
  - LUNG NEOPLASM [None]
  - PNEUMONIA [None]
